FAERS Safety Report 7561270-4 (Version None)
Quarter: 2011Q2

REPORT INFORMATION
  Report Type: 
  Country: None (occurrence: None)
  Receive Date: 20110621
  Receipt Date: 20110105
  Transmission Date: 20111010
  Serious: No
  Sender: FDA-Public Use
  Company Number: US-ASTRAZENECA-2011SE00683

PATIENT
  Age: 83 Year
  Sex: Female

DRUGS (2)
  1. PULMICORT [Suspect]
     Indication: CHRONIC OBSTRUCTIVE PULMONARY DISEASE
     Route: 055
     Dates: start: 20100101
  2. ALBUTEROL SULFATE AUTOHALER [Concomitant]

REACTIONS (2)
  - GINGIVAL BLEEDING [None]
  - OROPHARYNGEAL PAIN [None]
